FAERS Safety Report 14441848 (Version 2)
Quarter: 2018Q1

REPORT INFORMATION
  Report Type: Report from Study
  Country: US (occurrence: US)
  Receive Date: 20180125
  Receipt Date: 20180130
  Transmission Date: 20180509
  Serious: No
  Sender: FDA-Public Use
  Company Number: US-AMGEN-USASP2017179762

PATIENT
  Age: 65 Year
  Sex: Female

DRUGS (3)
  1. REPATHA [Suspect]
     Active Substance: EVOLOCUMAB
     Indication: PRODUCT USED FOR UNKNOWN INDICATION
     Dosage: 140 MG/ML, Q2WK
     Route: 058
     Dates: start: 20171009
  2. REPATHA [Suspect]
     Active Substance: EVOLOCUMAB
     Dosage: UNK
     Route: 058
  3. VITAMIN B12 [Concomitant]
     Active Substance: CYANOCOBALAMIN
     Dosage: UNK

REACTIONS (5)
  - Trigeminal neuralgia [Unknown]
  - Influenza [Unknown]
  - Injection site pain [Unknown]
  - Drug dose omission [Unknown]
  - Nasopharyngitis [Unknown]

NARRATIVE: CASE EVENT DATE: 2017
